FAERS Safety Report 12609248 (Version 1)
Quarter: 2016Q3

REPORT INFORMATION
  Report Type: Spontaneous
  Country: US (occurrence: US)
  Receive Date: 20160801
  Receipt Date: 20160801
  Transmission Date: 20161109
  Serious: No
  Sender: FDA-Public Use
  Company Number: US-ASTRAZENECA-2016SE79688

PATIENT
  Sex: Female
  Weight: 140.2 kg

DRUGS (3)
  1. RHINOCORT AQUA [Suspect]
     Active Substance: BUDESONIDE
     Indication: HYPERSENSITIVITY
     Dosage: 32 UG, ONE SPRAY PER NOSTRIL TWICE DAILY
     Route: 045
  2. ALLERGY PILL [Concomitant]
     Active Substance: UNSPECIFIED INGREDIENT
  3. RHINOCORT AQUA [Suspect]
     Active Substance: BUDESONIDE
     Indication: HYPERSENSITIVITY
     Dosage: GENERIC
     Route: 045

REACTIONS (3)
  - Drug ineffective [Recovered/Resolved]
  - Upper-airway cough syndrome [Recovered/Resolved]
  - Off label use [Not Recovered/Not Resolved]
